FAERS Safety Report 6026149-8 (Version None)
Quarter: 2008Q4

REPORT INFORMATION
  Report Type: 
  Country: None (occurrence: None)
  Receive Date: 20081230
  Receipt Date: 20081215
  Transmission Date: 20090506
  Serious: Yes (Hospitalization)
  Sender: FDA-Public Use
  Company Number: 2008-04689

PATIENT
  Age: 61 Year
  Sex: Female
  Weight: 69.6 kg

DRUGS (16)
  1. VELCADE [Suspect]
     Indication: METASTATIC MALIGNANT MELANOMA
     Dosage: 1.3 MG/M2
     Dates: start: 20081119, end: 20081210
  2. INTERFERON ALFA-2B(INTERFERON ALFA-2B) VIAL, 1.5 - 3MIU [Suspect]
     Indication: METASTATIC MALIGNANT MELANOMA
     Dates: end: 20081128
  3. FENTANYL-100 [Concomitant]
  4. ZITHROMAX [Concomitant]
  5. LOPRESSOR (METOPROLOL TARTRATE) [Concomitant]
  6. FELCAINIDE (FLECAINIDE) [Concomitant]
  7. ASPIRIN [Concomitant]
  8. REGLAN [Concomitant]
  9. ACETAMINOPHEN [Concomitant]
  10. ADVIL [Concomitant]
  11. PERCOCET [Concomitant]
  12. GABAPENTIN [Concomitant]
  13. FLUCONAZOLE [Concomitant]
  14. CAPHOSOL [Concomitant]
  15. BENADRYL (SODIUM CITRATE, AMMONIUM CHLORIDE, MENTHOL, DIPHENHYDRAMINE [Concomitant]
  16. NEXIUM [Concomitant]

REACTIONS (33)
  - ANOREXIA [None]
  - ASCITES [None]
  - ASTHENIA [None]
  - ATELECTASIS [None]
  - BLOOD CHLORIDE DECREASED [None]
  - BLOOD CREATININE INCREASED [None]
  - BLOOD POTASSIUM INCREASED [None]
  - BLOOD SODIUM DECREASED [None]
  - BLOOD UREA INCREASED [None]
  - BRONCHITIS [None]
  - CONFUSIONAL STATE [None]
  - DEHYDRATION [None]
  - DIARRHOEA [None]
  - HAEMATOCRIT DECREASED [None]
  - HAEMOGLOBIN DECREASED [None]
  - HEPATIC LESION [None]
  - HYPOPHAGIA [None]
  - HYPOTENSION [None]
  - LETHARGY [None]
  - LYMPHADENOPATHY [None]
  - MALIGNANT NEOPLASM PROGRESSION [None]
  - METASTASES TO ABDOMINAL CAVITY [None]
  - METASTASES TO BONE [None]
  - METASTASES TO LUNG [None]
  - METASTASES TO THORAX [None]
  - PERICARDIAL EFFUSION [None]
  - PLEURAL EFFUSION [None]
  - RIB FRACTURE [None]
  - SEPSIS [None]
  - SPLENIC LESION [None]
  - THERAPEUTIC RESPONSE DECREASED [None]
  - UNRESPONSIVE TO STIMULI [None]
  - WHITE BLOOD CELL COUNT INCREASED [None]
